FAERS Safety Report 12990576 (Version 2)
Quarter: 2016Q4

REPORT INFORMATION
  Report Type: Spontaneous
  Country: IT (occurrence: IT)
  Receive Date: 20161201
  Receipt Date: 20161210
  Transmission Date: 20170207
  Serious: No
  Sender: FDA-Public Use
  Company Number: IT-MYLANLABS-2016M1052549

PATIENT

DRUGS (1)
  1. PANTOPRAZOLO MYLAN 40 MG COMPRESSE GASTRORESISTENTI [Suspect]
     Active Substance: PANTOPRAZOLE SODIUM
     Indication: PRODUCT USED FOR UNKNOWN INDICATION
     Dosage: 40 MG, UNK
     Route: 048

REACTIONS (1)
  - Product taste abnormal [Unknown]
